FAERS Safety Report 16028188 (Version 1)
Quarter: 2019Q1

REPORT INFORMATION
  Report Type: Report from Study
  Country: PT (occurrence: PT)
  Receive Date: 20190304
  Receipt Date: 20190304
  Transmission Date: 20190418
  Serious: Yes (Hospitalization)
  Sender: FDA-Public Use
  Company Number: PT-ROCHE-2215250

PATIENT
  Age: 88 Year
  Sex: Male

DRUGS (20)
  1. LATANOPROST. [Concomitant]
     Active Substance: LATANOPROST
     Route: 065
     Dates: start: 20180115
  2. FUROSEMIDE. [Concomitant]
     Active Substance: FUROSEMIDE
     Indication: CARDIAC FAILURE
     Route: 065
  3. SPIRONOLACTONE. [Concomitant]
     Active Substance: SPIRONOLACTONE
     Indication: CARDIAC FAILURE
     Route: 065
  4. PHOSPHOMYCIN [Concomitant]
     Indication: DIARRHOEA
     Dosage: ONGOING = NOT CHECKED
     Route: 065
     Dates: start: 20170420
  5. PARACETAMOL [Concomitant]
     Active Substance: ACETAMINOPHEN
     Indication: LIMB INJURY
     Route: 065
     Dates: start: 20170805
  6. TAXOL [Suspect]
     Active Substance: PACLITAXEL
     Indication: BREAST CANCER
     Dosage: MOST RECENT DOSE: /JUL/2017
     Route: 042
     Dates: start: 20170316, end: 201707
  7. MEGESTROL [Concomitant]
     Active Substance: MEGESTROL
     Route: 065
  8. ACETYLSALICYLIC ACID [Concomitant]
     Active Substance: ASPIRIN
     Dosage: ONGOING = CHECKED
     Route: 065
  9. CINCHOCAINE/PREDNISOLONE ACETATE [Concomitant]
     Dosage: ONGOING = CHECKED
     Route: 065
     Dates: start: 20170323
  10. HYAL-DROP [Concomitant]
     Dosage: ONGOING = CHECKED
     Route: 065
     Dates: start: 20170615
  11. BISOPROLOL [Concomitant]
     Active Substance: BISOPROLOL
     Indication: CARDIAC FAILURE
     Route: 065
  12. METFORMIN/VILDAGLIPTIN [Concomitant]
     Active Substance: METFORMIN\VILDAGLIPTIN
     Route: 065
  13. DICLOFENAC [Concomitant]
     Active Substance: DICLOFENAC
     Indication: LIMB INJURY
     Route: 061
     Dates: start: 20170808
  14. TRASTUZUMAB. [Suspect]
     Active Substance: TRASTUZUMAB
     Indication: BREAST CANCER
     Dosage: MOST RECENT DOSE PRIOR TO THE EVENT: 25/MAY/2017
     Route: 042
     Dates: start: 20170406
  15. PERTUZUMAB. [Suspect]
     Active Substance: PERTUZUMAB
     Indication: BREAST CANCER
     Dosage: MOST RECENT DOSE PRIOR TO THE EVENT: 04/MAY/2017
     Route: 042
     Dates: start: 20170406
  16. TAPENTADOL [Concomitant]
     Active Substance: TAPENTADOL
     Route: 065
     Dates: start: 20180115
  17. PERINDOPRIL [Concomitant]
     Active Substance: PERINDOPRIL
     Indication: CARDIAC FAILURE
     Route: 065
  18. NEOFLORILAX [Concomitant]
     Route: 065
  19. METOCLOPRAMIDE. [Concomitant]
     Active Substance: METOCLOPRAMIDE
     Indication: NAUSEA
     Route: 065
     Dates: start: 20170420
  20. LOPERAMIDE [Concomitant]
     Active Substance: LOPERAMIDE
     Indication: DIARRHOEA
     Route: 065
     Dates: start: 20170420

REACTIONS (1)
  - Respiratory tract infection [Recovered/Resolved]

NARRATIVE: CASE EVENT DATE: 20180709
